FAERS Safety Report 4859949-8 (Version None)
Quarter: 2005Q4

REPORT INFORMATION
  Report Type: 
  Country: None (occurrence: None)
  Receive Date: 20051219
  Receipt Date: 20051207
  Transmission Date: 20060501
  Serious: Yes (Hospitalization)
  Sender: FDA-Public Use
  Company Number: FR-BRISTOL-MYERS SQUIBB COMPANY-13207634

PATIENT
  Age: 51 Year
  Sex: Female

DRUGS (12)
  1. AMIKLIN INJ 1 G [Suspect]
     Route: 042
     Dates: start: 20051102, end: 20051103
  2. TAZOCILLINE [Suspect]
     Dosage: DOSAGE FORM-4G/500MG
     Route: 042
     Dates: start: 20051102, end: 20051104
  3. OROKEN [Suspect]
     Dates: start: 20051028, end: 20051102
  4. CIFLOX [Suspect]
     Dates: start: 20051024, end: 20051102
  5. STILNOX [Concomitant]
     Dates: start: 20051024
  6. ZOLOFT [Concomitant]
  7. LEVOTHYROXINE SODIUM [Concomitant]
     Dates: start: 20051024
  8. DEPAKENE [Concomitant]
  9. ALEPSAL [Concomitant]
  10. LEXOMIL [Concomitant]
  11. TAXOTERE [Concomitant]
  12. HERCEPTIN [Concomitant]

REACTIONS (2)
  - ERYTHEMA [None]
  - OEDEMA [None]
